FAERS Safety Report 4633128-1 (Version None)
Quarter: 2005Q2

REPORT INFORMATION
  Report Type: 
  Country: None (occurrence: None)
  Receive Date: 20050412
  Receipt Date: 20050317
  Transmission Date: 20051028
  Serious: Yes (Hospitalization)
  Sender: FDA-Public Use
  Company Number: JP-GLAXOSMITHKLINE-B0375190A

PATIENT
  Age: 75 Year
  Sex: Female
  Weight: 52 kg

DRUGS (11)
  1. VALTREX [Suspect]
     Indication: HERPES ZOSTER
     Dosage: 1000MG THREE TIMES PER DAY
     Route: 048
     Dates: start: 20050314, end: 20050315
  2. FUROSEMIDE [Concomitant]
     Route: 065
  3. LOXONIN [Concomitant]
     Route: 048
  4. BLOPRESS [Concomitant]
     Indication: HYPERTENSION
     Dosage: 4MG PER DAY
     Route: 048
  5. MEVALOTIN [Concomitant]
     Dosage: 10MG PER DAY
     Route: 048
  6. ANPLAG [Concomitant]
     Indication: ARTERIAL OCCLUSIVE DISEASE
     Dosage: 300MG PER DAY
     Route: 048
  7. DEPAS [Concomitant]
     Indication: INSOMNIA
     Dosage: .5MG PER DAY
     Route: 048
  8. LAXOBERON [Concomitant]
     Indication: CONSTIPATION
     Dosage: 2TAB PER DAY
     Route: 048
  9. ROHYPNOL [Concomitant]
     Indication: INSOMNIA
     Dosage: 1MG PER DAY
     Route: 048
  10. NORVASC [Concomitant]
     Indication: HYPERTENSION
     Dosage: 5MG PER DAY
     Route: 048
  11. HUMULIN R [Concomitant]
     Indication: DIABETES MELLITUS
     Dosage: 15.99IU PER DAY
     Route: 058

REACTIONS (4)
  - DYSPHONIA [None]
  - ENCEPHALOPATHY [None]
  - OEDEMA PERIPHERAL [None]
  - RENAL FAILURE ACUTE [None]
